FAERS Safety Report 9039379 (Version 1)
Quarter: 2013Q1

REPORT INFORMATION
  Report Type: Report from Study
  Country: US (occurrence: US)
  Receive Date: 20130129
  Receipt Date: 20130129
  Transmission Date: 20140127
  Serious: No
  Sender: FDA-Public Use
  Company Number: US-ABBOTT-12P-163-0930537-00

PATIENT
  Age: 30 Year
  Sex: Female

DRUGS (17)
  1. HUMIRA 40 MG/0.8 ML PEN [Suspect]
     Indication: RHEUMATOID ARTHRITIS
     Dates: start: 201204
  2. METHOTREXATE [Concomitant]
     Indication: RHEUMATOID ARTHRITIS
     Dosage: 20MG WEEKLY
  3. PROVIGIL [Concomitant]
     Indication: NARCOLEPSY
     Dosage: 200MG DAILY
  4. FLUCONAZOLE [Concomitant]
     Indication: FUNGAL INFECTION
  5. MULTIVITAMIN [Concomitant]
     Indication: VITAMIN SUPPLEMENTATION
     Dosage: DAILY
  6. FOLIC ACID [Concomitant]
     Indication: VITAMIN SUPPLEMENTATION
     Dosage: DAILY
  7. NORCO [Concomitant]
     Indication: PAIN
     Dosage: 10/325MG APAP AS NEEDED
  8. NORCO [Concomitant]
     Indication: RHEUMATOID ARTHRITIS
  9. ALPRAZOLAM [Concomitant]
     Indication: MUSCLE SPASMS
     Dosage: 0.25MG AS NEEDED AT NIGHT
  10. ALPRAZOLAM [Concomitant]
     Indication: NECK PAIN
  11. ALPRAZOLAM [Concomitant]
     Indication: RHEUMATOID ARTHRITIS
  12. VIATIN [Concomitant]
     Indication: PRODUCT USED FOR UNKNOWN INDICATION
     Dosage: 5000MCG DAILY
  13. VITAMIN B6 [Concomitant]
     Indication: PRODUCT USED FOR UNKNOWN INDICATION
     Dosage: 100MG DAILY
  14. L-GLUTAMINE [Concomitant]
     Indication: PRODUCT USED FOR UNKNOWN INDICATION
  15. PROBIOTIC [Concomitant]
     Indication: PROBIOTIC THERAPY
     Dosage: DAILY
  16. FORMALDEHYDE [Concomitant]
     Indication: SKIN PAPILLOMA
     Dosage: 10% ROLL ON SOLUTION
     Route: 061
  17. FLUOROURACIL [Concomitant]
     Indication: SKIN PAPILLOMA
     Dosage: 5% CREAM
     Route: 061

REACTIONS (4)
  - Incorrect dose administered [Recovered/Resolved]
  - Injection site bruising [Recovered/Resolved]
  - Injection site haemorrhage [Recovered/Resolved]
  - Injection site mass [Recovered/Resolved]
